FAERS Safety Report 15722744 (Version 1)
Quarter: 2018Q4

REPORT INFORMATION
  Report Type: Spontaneous
  Country: PL (occurrence: PL)
  Receive Date: 20181214
  Receipt Date: 20181214
  Transmission Date: 20190205
  Serious: Yes (Other)
  Sender: FDA-Public Use
  Company Number: PL-TEVA-2018-PL-988468

PATIENT
  Sex: Male

DRUGS (1)
  1. VALSOTENS HCT [Suspect]
     Active Substance: HYDROCHLOROTHIAZIDE\VALSARTAN
     Route: 065
     Dates: start: 2009

REACTIONS (6)
  - Skin cancer [Not Recovered/Not Resolved]
  - Mass [Not Recovered/Not Resolved]
  - Skin wound [Not Recovered/Not Resolved]
  - Lichen planus [Not Recovered/Not Resolved]
  - Scab [Not Recovered/Not Resolved]
  - Skin haemorrhage [Not Recovered/Not Resolved]

NARRATIVE: CASE EVENT DATE: 2016
